FAERS Safety Report 5034072-0 (Version None)
Quarter: 2006Q2

REPORT INFORMATION
  Report Type: 
  Country: None (occurrence: None)
  Receive Date: 20060621
  Receipt Date: 20060601
  Transmission Date: 20061013
  Serious: Yes (Other)
  Sender: FDA-Public Use
  Company Number: 2543

PATIENT
  Age: 27 Year
  Sex: Female

DRUGS (2)
  1. AMNESTEEM [Suspect]
     Dosage: 20 MG, BID, PO
     Route: 048
     Dates: start: 20050322, end: 20050809
  2. AMNESTEEM [Suspect]
     Dosage: 20 MG, BID, PO
     Route: 048
     Dates: start: 20060128, end: 20060405

REACTIONS (2)
  - HEADACHE [None]
  - RETINAL HAEMORRHAGE [None]
